FAERS Safety Report 8440085-9 (Version None)
Quarter: 2012Q2

REPORT INFORMATION
  Report Type: 
  Country: None (occurrence: None)
  Receive Date: 20120615
  Receipt Date: 20120605
  Transmission Date: 20120825
  Serious: Yes (Hospitalization)
  Sender: FDA-Public Use
  Company Number: US-ELI_LILLY_AND_COMPANY-US201206002092

PATIENT
  Age: 58 Year
  Sex: Female

DRUGS (6)
  1. CEFAZOLIN [Concomitant]
     Dosage: 2 DF, TID
     Route: 042
  2. PROGESTERONE [Concomitant]
     Dosage: UNK
  3. VITAMIN D [Concomitant]
     Dosage: UNK
  4. MULTI-VITAMIN [Concomitant]
     Dosage: UNK
  5. FORTEO [Suspect]
     Indication: OSTEOPOROSIS
     Dosage: 20 UG, QD
     Dates: start: 20120501
  6. CALCIUM [Concomitant]
     Dosage: UNK

REACTIONS (1)
  - LOCALISED INFECTION [None]
